FAERS Safety Report 6796046-9 (Version None)
Quarter: 2010Q2

REPORT INFORMATION
  Report Type: 
  Country: None (occurrence: None)
  Receive Date: 20100625
  Receipt Date: 20100616
  Transmission Date: 20101027
  Serious: Yes (Death)
  Sender: FDA-Public Use
  Company Number: CA-ABBOTT-10P-028-0651759-00

PATIENT
  Sex: Male
  Weight: 40.86 kg

DRUGS (1)
  1. LUPRON DEPOT [Suspect]
     Indication: PROSTATE CANCER
     Dates: start: 20091102, end: 20100302

REACTIONS (1)
  - VIRAL INFECTION [None]
